FAERS Safety Report 8516667-2 (Version None)
Quarter: 2012Q2

REPORT INFORMATION
  Report Type: 
  Country: None (occurrence: None)
  Receive Date: 20120406
  Receipt Date: 20101103
  Transmission Date: 20120825
  Serious: Yes (Disabling)
  Sender: FDA-Public Use
  Company Number: PHHY2010US75391

PATIENT
  Age: 34 Year
  Sex: Female
  Weight: 88.4 kg

DRUGS (5)
  1. TASIGNA [Suspect]
     Indication: CHRONIC MYELOID LEUKAEMIA
     Dosage: 300 MG, Q12H,
     Dates: start: 20100826, end: 20101001
  2. MAGNESIUM SULFATE [Concomitant]
  3. TRILIPIX (CHLINE FENOFIBRATE) [Concomitant]
  4. KLOR-CON [Concomitant]
  5. PERCOCET [Concomitant]

REACTIONS (4)
  - PAIN OF SKIN [None]
  - PAPULE [None]
  - RASH GENERALISED [None]
  - PRURITUS [None]
